FAERS Safety Report 7471778-8 (Version None)
Quarter: 2011Q2

REPORT INFORMATION
  Report Type: 
  Country: None (occurrence: None)
  Receive Date: 20110511
  Receipt Date: 20100426
  Transmission Date: 20111010
  Serious: No
  Sender: FDA-Public Use
  Company Number: A0856761A

PATIENT
  Age: 85 Year
  Sex: Female
  Weight: 59.5 kg

DRUGS (4)
  1. ANTACID TAB [Concomitant]
  2. OMEPRAZOLE [Concomitant]
  3. TYKERB [Suspect]
     Indication: BREAST CANCER
     Dosage: 250MG FIVE TIMES PER DAY
     Route: 048
     Dates: start: 20100217
  4. NEXIUM [Concomitant]

REACTIONS (5)
  - CHROMATURIA [None]
  - DIARRHOEA [None]
  - FATIGUE [None]
  - ASTHENIA [None]
  - WEIGHT DECREASED [None]
